FAERS Safety Report 13700703 (Version 1)
Quarter: 2017Q2

REPORT INFORMATION
  Report Type: Spontaneous
  Country: US (occurrence: US)
  Receive Date: 20170628
  Receipt Date: 20170628
  Transmission Date: 20170830
  Serious: No
  Sender: FDA-Public Use
  Company Number: None

PATIENT
  Age: 26 Day
  Sex: Female
  Weight: 68.1 kg

DRUGS (1)
  1. PARAGARD T 380A [Suspect]
     Active Substance: COPPER

REACTIONS (16)
  - Pollakiuria [None]
  - Fatigue [None]
  - Arthralgia [None]
  - Haemorrhage [None]
  - Viral upper respiratory tract infection [None]
  - Metrorrhagia [None]
  - Oropharyngeal pain [None]
  - Weight increased [None]
  - Depression [None]
  - Apathy [None]
  - Confusional state [None]
  - Abdominal pain lower [None]
  - Vulvovaginal disorder [None]
  - Uterine spasm [None]
  - Acne [None]
  - Insomnia [None]

NARRATIVE: CASE EVENT DATE: 20170628
